FAERS Safety Report 16181426 (Version 1)
Quarter: 2019Q2

REPORT INFORMATION
  Report Type: Spontaneous
  Country: US (occurrence: US)
  Receive Date: 20190410
  Receipt Date: 20190410
  Transmission Date: 20190711
  Serious: No
  Sender: FDA-Public Use
  Company Number: US-PFIZER INC-2019141995

PATIENT

DRUGS (1)
  1. TESSALON [Suspect]
     Active Substance: BENZONATATE
     Indication: UPPER RESPIRATORY TRACT INFECTION
     Dosage: UNK

REACTIONS (1)
  - Alcohol intolerance [Unknown]
